FAERS Safety Report 9526870 (Version 2)
Quarter: 2013Q4

REPORT INFORMATION
  Report Type: Report from Study
  Country: JP (occurrence: JP)
  Receive Date: 20130916
  Receipt Date: 20131009
  Transmission Date: 20140711
  Serious: Yes (Death, Other)
  Sender: FDA-Public Use
  Company Number: JP-TAKEDA-2013TJP000729

PATIENT
  Age: 89 Year
  Sex: Male
  Weight: 53 kg

DRUGS (5)
  1. ALOGLIPTIN [Suspect]
     Indication: TYPE 2 DIABETES MELLITUS
     Dosage: 25 MG, QD
     Route: 048
     Dates: start: 20120418, end: 20130211
  2. ACTOS [Concomitant]
     Indication: TYPE 2 DIABETES MELLITUS
     Route: 048
     Dates: end: 20130211
  3. BLOPRESS [Concomitant]
     Route: 048
  4. PARULEON [Concomitant]
     Route: 048
  5. HOKUNALIN TAPE [Concomitant]
     Route: 062

REACTIONS (1)
  - Cerebrovascular accident [Fatal]
